FAERS Safety Report 7297773-X (Version None)
Quarter: 2011Q1

REPORT INFORMATION
  Report Type: 
  Country: None (occurrence: None)
  Receive Date: 20110214
  Receipt Date: 20110214
  Transmission Date: 20110831
  Serious: No
  Sender: FDA-Public Use
  Company Number: None

PATIENT
  Age: 61 Year
  Sex: Female
  Weight: 65.7716 kg

DRUGS (1)
  1. IBANDRONATE SODIUM [Suspect]
     Indication: OSTEOPOROSIS PROPHYLAXIS
     Dosage: 150 MG. 1 X/MO.
     Dates: start: 20100701, end: 20110208

REACTIONS (5)
  - OCULAR HYPERAEMIA [None]
  - EYE PAIN [None]
  - VISION BLURRED [None]
  - PHOTOPHOBIA [None]
  - SCLERITIS [None]
